FAERS Safety Report 14648463 (Version 1)
Quarter: 2018Q1

REPORT INFORMATION
  Report Type: Spontaneous
  Country: EC (occurrence: EC)
  Receive Date: 20180316
  Receipt Date: 20180316
  Transmission Date: 20180509
  Serious: Yes (Disabling)
  Sender: FDA-Public Use
  Company Number: EC-PFIZER INC-2018104908

PATIENT
  Age: 89 Year
  Sex: Female

DRUGS (1)
  1. XANAX XR [Suspect]
     Active Substance: ALPRAZOLAM
     Indication: INSOMNIA
     Dosage: 0.5 MG, UNK

REACTIONS (3)
  - Intentional product misuse [Unknown]
  - Gait inability [Unknown]
  - Drug dispensing error [Unknown]
